FAERS Safety Report 24369273 (Version 1)
Quarter: 2024Q3

REPORT INFORMATION
  Report Type: Report from Study
  Country: CO (occurrence: CO)
  Receive Date: 20240927
  Receipt Date: 20240927
  Transmission Date: 20241017
  Serious: Yes (Hospitalization, Other)
  Sender: UCB
  Company Number: CO-UCBSA-2024049515

PATIENT
  Age: 77 Year
  Sex: Female

DRUGS (9)
  1. ROTIGOTINE [Suspect]
     Active Substance: ROTIGOTINE
     Indication: Parkinson^s disease
     Dosage: 8 MILLIGRAM, ONCE DAILY (QD)
     Route: 062
     Dates: start: 20150303, end: 20221114
  2. ROTIGOTINE [Suspect]
     Active Substance: ROTIGOTINE
     Dosage: 12 MILLIGRAM, ONCE DAILY (QD)
     Route: 062
     Dates: start: 20221115
  3. AMLODIPINE\TELMISARTAN [Concomitant]
     Active Substance: AMLODIPINE\TELMISARTAN
     Indication: Product used for unknown indication
     Dosage: UNK
  4. LEVOTHYROXINE [Concomitant]
     Active Substance: LEVOTHYROXINE\LEVOTHYROXINE SODIUM
     Indication: Product used for unknown indication
     Dosage: UNK
  5. CALCIUM [Concomitant]
     Active Substance: CALCIUM
     Indication: Product used for unknown indication
     Dosage: UNK
  6. ROSUVASTATIN [Concomitant]
     Active Substance: ROSUVASTATIN\ROSUVASTATIN CALCIUM
     Indication: Product used for unknown indication
     Dosage: UNK
  7. ACETAMINOPHEN [Concomitant]
     Active Substance: ACETAMINOPHEN
     Indication: Product used for unknown indication
     Dosage: UNK
  8. ZOPICLONE [Concomitant]
     Active Substance: ZOPICLONE
     Indication: Product used for unknown indication
     Dosage: UNK
  9. CARBIDOPA\LEVODOPA [Concomitant]
     Active Substance: CARBIDOPA\LEVODOPA
     Indication: Product used for unknown indication
     Dosage: UNK

REACTIONS (8)
  - Fall [Recovered/Resolved]
  - Hip fracture [Recovered/Resolved]
  - Hip surgery [Recovered/Resolved]
  - Rib fracture [Recovered/Resolved]
  - Fracture treatment [Recovered/Resolved]
  - Pain [Not Recovered/Not Resolved]
  - Injury [Recovered/Resolved]
  - Off label use [Unknown]

NARRATIVE: CASE EVENT DATE: 20150303
